FAERS Safety Report 4846452-4 (Version None)
Quarter: 2005Q4

REPORT INFORMATION
  Report Type: 
  Country: None (occurrence: None)
  Receive Date: 20051202
  Receipt Date: 20051121
  Transmission Date: 20060501
  Serious: Yes (Hospitalization, Other)
  Sender: FDA-Public Use
  Company Number: 2005151038

PATIENT
  Age: 78 Year
  Sex: Female
  Weight: 52.1637 kg

DRUGS (5)
  1. CELEBREX [Suspect]
     Indication: OSTEOARTHRITIS
     Dosage: 200 MG (200 MG, QD INTERVAL: EVERY DAY), ORAL
     Route: 048
     Dates: start: 20050907, end: 20050914
  2. VITAMINS (VITAMINS) [Concomitant]
  3. ATENOLOL [Concomitant]
  4. TUMS (CALCIUM CARBONATE) [Concomitant]
  5. TRILEPTAL [Concomitant]

REACTIONS (5)
  - ABDOMINAL PAIN UPPER [None]
  - DYSPEPSIA [None]
  - GASTROOESOPHAGEAL REFLUX DISEASE [None]
  - HAEMATOCHEZIA [None]
  - WEIGHT DECREASED [None]
